FAERS Safety Report 4312550-7 (Version None)
Quarter: 2004Q1

REPORT INFORMATION
  Report Type: 
  Country: None (occurrence: None)
  Receive Date: 20040305
  Receipt Date: 20040227
  Transmission Date: 20041129
  Serious: Yes (Death, Life-Threatening, Hospitalization, Other)
  Sender: FDA-Public Use
  Company Number: FR-BRISTOL-MYERS SQUIBB COMPANY-12525002

PATIENT
  Age: 59 Year
  Sex: Female

DRUGS (4)
  1. ENDOXAN [Suspect]
     Indication: MULTIPLE MYELOMA
     Route: 042
  2. VP-16 [Suspect]
     Indication: MULTIPLE MYELOMA
     Route: 042
  3. MELPHALAN [Suspect]
     Indication: MULTIPLE MYELOMA
     Route: 042
  4. ZOMETA [Suspect]
     Indication: METASTASES TO BONE
     Route: 042
     Dates: start: 20020903, end: 20030417

REACTIONS (6)
  - CEREBROVASCULAR ACCIDENT [None]
  - COMPUTERISED TOMOGRAM ABNORMAL [None]
  - DISEASE PROGRESSION [None]
  - FEBRILE BONE MARROW APLASIA [None]
  - MULTIPLE MYELOMA [None]
  - RENAL FAILURE [None]
